FAERS Safety Report 8778885 (Version 2)
Quarter: 2012Q4

REPORT INFORMATION
  Report Type: 
  Country: US (occurrence: US)
  Receive Date: 20120912
  Receipt Date: 20121212
  Transmission Date: 20130627
  Serious: Yes (Life-Threatening, Other)
  Sender: FDA-Public Use
  Company Number: PHEH2012US017545

PATIENT
  Age: 74 Year
  Sex: Male

DRUGS (7)
  1. EXELON PATCH [Suspect]
     Indication: AMNESIA
     Dosage: 9.5 mg/24 hours
     Route: 062
     Dates: start: 20120803, end: 20120806
  2. CARAFATE [Concomitant]
     Dosage: 4 DF, daily
  3. PENTASA [Concomitant]
     Dosage: 2 DF, BID
  4. PRILOSEC [Concomitant]
     Dosage: 40 mg, daily
  5. VIT D [Concomitant]
  6. LORTAB [Concomitant]
  7. OXYCONTIN [Concomitant]

REACTIONS (5)
  - Feeling abnormal [Unknown]
  - Aggression [Unknown]
  - Intestinal mucosal hypertrophy [Unknown]
  - Nausea [Recovered/Resolved]
  - Vomiting [Recovered/Resolved]
